FAERS Safety Report 5426183-2 (Version None)
Quarter: 2007Q3

REPORT INFORMATION
  Report Type: 
  Country: None (occurrence: None)
  Receive Date: 20070827
  Receipt Date: 20070822
  Transmission Date: 20080115
  Serious: Yes (Hospitalization)
  Sender: FDA-Public Use
  Company Number: A0674702A

PATIENT
  Age: 82 Year
  Sex: Female

DRUGS (7)
  1. ADVAIR DISKUS 100/50 [Suspect]
     Indication: CHRONIC OBSTRUCTIVE PULMONARY DISEASE
     Dosage: 1PUFF TWICE PER DAY
     Route: 055
  2. AMARYL [Concomitant]
  3. LASIX [Concomitant]
  4. AVAPRO [Concomitant]
  5. MAGNESIUM OXIDE [Concomitant]
  6. THYROID TAB [Concomitant]
  7. UNSPECIFIED MEDICATION [Concomitant]

REACTIONS (4)
  - ANOREXIA [None]
  - FRACTURE [None]
  - ULCER [None]
  - WEIGHT DECREASED [None]
